FAERS Safety Report 7354636-9 (Version None)
Quarter: 2011Q1

REPORT INFORMATION
  Report Type: 
  Country: None (occurrence: None)
  Receive Date: 20110316
  Receipt Date: 20110311
  Transmission Date: 20110831
  Serious: Yes (Death, Hospitalization, Other)
  Sender: FDA-Public Use
  Company Number: US-PFIZER INC-2010009219

PATIENT
  Sex: Female

DRUGS (5)
  1. CHANTIX [Suspect]
     Dosage: 1 MG, UNK
     Dates: start: 20071219, end: 20080127
  2. PROVIGIL [Concomitant]
     Indication: FATIGUE
  3. CHANTIX [Suspect]
     Indication: SMOKING CESSATION THERAPY
     Dosage: 0.5 MG, UNK
     Route: 048
     Dates: start: 20071219, end: 20080127
  4. PROVIGIL [Concomitant]
     Indication: ATTENTION DEFICIT/HYPERACTIVITY DISORDER
     Dosage: UNK
     Dates: start: 20050101, end: 20080127
  5. PROZAC [Concomitant]
     Indication: DEPRESSION
     Dosage: UNK
     Dates: start: 19970101

REACTIONS (3)
  - DEPRESSION [None]
  - COMPLETED SUICIDE [None]
  - ANXIETY [None]
